FAERS Safety Report 4512134-1 (Version None)
Quarter: 2004Q4

REPORT INFORMATION
  Report Type: 
  Country: None (occurrence: None)
  Receive Date: 20041129
  Receipt Date: 20040105
  Transmission Date: 20050328
  Serious: No
  Sender: FDA-Public Use
  Company Number: US-GLAXOSMITHKLINE-A0491329A

PATIENT
  Age: 86 Year
  Sex: Male

DRUGS (1)
  1. LANOXIN [Suspect]
     Indication: ATRIAL FIBRILLATION
     Dosage: 125MCG PER DAY
     Route: 048

REACTIONS (1)
  - BRADYCARDIA [None]
